FAERS Safety Report 5650959-X (Version None)
Quarter: 2008Q1

REPORT INFORMATION
  Report Type: 
  Country: None (occurrence: None)
  Receive Date: 20080305
  Receipt Date: 20080225
  Transmission Date: 20080703
  Serious: Yes (Hospitalization)
  Sender: FDA-Public Use
  Company Number: FR-ROCHE-549640

PATIENT
  Age: 52 Year
  Sex: Male

DRUGS (3)
  1. ROCEPHIN [Suspect]
     Indication: DRUG USE FOR UNKNOWN INDICATION
     Dosage: FORM REPORTED AS INJECTABLE SOLUTION.
     Route: 042
     Dates: start: 20070721, end: 20070725
  2. KETEK [Suspect]
     Indication: SINUSITIS
     Route: 048
     Dates: start: 20070602, end: 20070607
  3. AUGMENTIN '250' [Suspect]
     Indication: SINUSITIS
     Route: 048
     Dates: start: 20070710, end: 20070716

REACTIONS (1)
  - HEPATITIS CHOLESTATIC [None]
